FAERS Safety Report 13451803 (Version 1)
Quarter: 2017Q2

REPORT INFORMATION
  Report Type: Spontaneous
  Country: US (occurrence: US)
  Receive Date: 20170418
  Receipt Date: 20170418
  Transmission Date: 20170830
  Serious: Yes (Hospitalization)
  Sender: FDA-Public Use
  Company Number: None

PATIENT
  Age: 43 Year
  Sex: Female
  Weight: 63.5 kg

DRUGS (15)
  1. NIACINAMIDE WITH VITAMIN C [Concomitant]
  2. PFEIFFER PRIMER MULTIVITAMIN [Concomitant]
  3. KEPPRA [Suspect]
     Active Substance: LEVETIRACETAM
     Indication: SEIZURE
     Dosage: 500 ML 1 PILL AM + PM BY MOUTH
     Route: 048
     Dates: start: 20150323, end: 20170201
  4. EUCERIN [Concomitant]
     Active Substance: ENSULIZOLE\EUCERIN\OCTINOXATE\OCTISALATE\TITANIUM DIOXIDE\ZINC OXIDE
  5. CLOZARIL [Concomitant]
     Active Substance: CLOZAPINE
  6. OLANZAPINE. [Concomitant]
     Active Substance: OLANZAPINE
  7. FISH OIL [Concomitant]
     Active Substance: FISH OIL
  8. DOCUSATE [Concomitant]
     Active Substance: DOCUSATE
  9. DIVALPROEX [Concomitant]
     Active Substance: DIVALPROEX SODIUM
  10. OXAZEPAM. [Concomitant]
     Active Substance: OXAZEPAM
  11. SENEKOT [Concomitant]
  12. LITHIUM CARBONATE. [Concomitant]
     Active Substance: LITHIUM CARBONATE
  13. OLANZAPINE. [Concomitant]
     Active Substance: OLANZAPINE
  14. VITAMIN B12 [Concomitant]
     Active Substance: CYANOCOBALAMIN
  15. PYRIDOXOL PHOSPHATE [Concomitant]

REACTIONS (3)
  - Hostility [None]
  - Mental disorder [None]
  - Aggression [None]

NARRATIVE: CASE EVENT DATE: 20170120
